FAERS Safety Report 7214383-0 (Version None)
Quarter: 2011Q1

REPORT INFORMATION
  Report Type: 
  Country: None (occurrence: None)
  Receive Date: 20110107
  Receipt Date: 20101229
  Transmission Date: 20110831
  Serious: Yes (Death, Life-Threatening)
  Sender: FDA-Public Use
  Company Number: PL-CELGENEUS-129-21880-10111315

PATIENT
  Sex: Female

DRUGS (8)
  1. RED BLOOD CELLS [Concomitant]
     Route: 051
     Dates: start: 20100903, end: 20100903
  2. REVLIMID [Suspect]
     Route: 048
     Dates: end: 20101107
  3. CLEXANE [Concomitant]
     Indication: THROMBOSIS PROPHYLAXIS
     Route: 058
     Dates: start: 20100805
  4. RED BLOOD CELLS [Concomitant]
     Indication: MULTIPLE MYELOMA
     Route: 051
     Dates: start: 20100823, end: 20100823
  5. DIAPREL [Concomitant]
     Indication: DIABETES MELLITUS
     Route: 048
  6. RED BLOOD CELLS [Concomitant]
     Route: 051
     Dates: start: 20101022, end: 20101022
  7. REVLIMID [Suspect]
     Indication: MULTIPLE MYELOMA
     Route: 048
     Dates: start: 20100805
  8. DEXAVEN [Concomitant]
     Route: 048
     Dates: start: 20101205

REACTIONS (3)
  - CARDIOPULMONARY FAILURE [None]
  - STERNAL FRACTURE [None]
  - PNEUMONIA [None]
